FAERS Safety Report 25876877 (Version 1)
Quarter: 2025Q4

REPORT INFORMATION
  Report Type: Spontaneous
  Country: CN (occurrence: CN)
  Receive Date: 20251003
  Receipt Date: 20251003
  Transmission Date: 20260119
  Serious: Yes (Hospitalization, Other)
  Sender: DAIICHI
  Company Number: CN-DSJP-DS-2025-166959-CN

PATIENT
  Age: 72 Year
  Sex: Male

DRUGS (4)
  1. EDOXABAN TOSYLATE [Suspect]
     Active Substance: EDOXABAN TOSYLATE
     Indication: Pyrexia
     Dosage: 1 DF, QD
     Route: 048
     Dates: start: 20250609, end: 20250610
  2. EDOXABAN TOSYLATE [Suspect]
     Active Substance: EDOXABAN TOSYLATE
     Dosage: 1 DF, QD
     Route: 048
     Dates: start: 20250612, end: 20250615
  3. MEROPENEM [Suspect]
     Active Substance: MEROPENEM
     Indication: Pyrexia
     Dosage: 1 G, TID
     Route: 041
     Dates: start: 20250605, end: 20250612
  4. MEROPENEM [Suspect]
     Active Substance: MEROPENEM
     Dosage: 1 G, BID
     Route: 041
     Dates: start: 20250612, end: 20250615

REACTIONS (1)
  - Drug reaction with eosinophilia and systemic symptoms [Recovering/Resolving]

NARRATIVE: CASE EVENT DATE: 20250615
